FAERS Safety Report 6209578-9 (Version None)
Quarter: 2009Q2

REPORT INFORMATION
  Report Type: 
  Country: None (occurrence: None)
  Receive Date: 20090601
  Receipt Date: 20090522
  Transmission Date: 20091009
  Serious: Yes (Other)
  Sender: FDA-Public Use
  Company Number: CZ-AMGEN-US340675

PATIENT
  Age: 30 Year
  Sex: Male

DRUGS (2)
  1. ENBREL [Suspect]
     Indication: ANKYLOSING SPONDYLITIS
     Route: 058
     Dates: start: 20080101
  2. ENBREL [Suspect]
     Route: 058
     Dates: start: 20080101

REACTIONS (2)
  - OPTIC NEURITIS [None]
  - TUBERCULOSIS TEST POSITIVE [None]
